FAERS Safety Report 9582203 (Version 1)
Quarter: 2013Q4

REPORT INFORMATION
  Report Type: Spontaneous
  Country: US (occurrence: US)
  Receive Date: 20131002
  Receipt Date: 20131002
  Transmission Date: 20140711
  Serious: No
  Sender: FDA-Public Use
  Company Number: US-AMGEN-USASP2013039161

PATIENT
  Age: 60 Year
  Sex: Female
  Weight: 69.39 kg

DRUGS (8)
  1. ENBREL [Suspect]
     Indication: PRODUCT USED FOR UNKNOWN INDICATION
     Dosage: 50 MG, QWK
     Route: 058
  2. ACIPHEX [Concomitant]
     Dosage: 20 MG, UNK
  3. RESTASIS [Concomitant]
     Dosage: UNK
  4. HYDROCHLOROTH [Concomitant]
     Dosage: 12.5 MG, UNK
  5. POTASSIUM [Concomitant]
     Dosage: 75 MG, UNK
  6. VITAMIN D3 [Concomitant]
     Dosage: 10000 UNIT, UNK
  7. CALCIUM D                          /00944201/ [Concomitant]
     Dosage: UNK
  8. MULTIVITAMINS, PLAIN [Concomitant]
     Dosage: UNK

REACTIONS (1)
  - Injection site urticaria [Unknown]
